FAERS Safety Report 12099425 (Version 1)
Quarter: 2016Q1

REPORT INFORMATION
  Report Type: Spontaneous
  Country: US (occurrence: US)
  Receive Date: 20160222
  Receipt Date: 20160222
  Transmission Date: 20160526
  Serious: No
  Sender: FDA-Public Use
  Company Number: US-TEVA-615432USA

PATIENT
  Age: 1 Year
  Sex: Male
  Weight: 10.9 kg

DRUGS (1)
  1. AMOXICILLIN. [Suspect]
     Active Substance: AMOXICILLIN
     Indication: SINUSITIS
     Route: 048
     Dates: start: 20151201, end: 20151202

REACTIONS (4)
  - Crying [Unknown]
  - Flatulence [Unknown]
  - Erythema [Unknown]
  - Restlessness [Unknown]

NARRATIVE: CASE EVENT DATE: 201512
